FAERS Safety Report 18092271 (Version 4)
Quarter: 2022Q3

REPORT INFORMATION
  Report Type: Other
  Country: CA (occurrence: CA)
  Receive Date: 20200730
  Receipt Date: 20220914
  Transmission Date: 20221027
  Serious: Yes (Hospitalization, Other)
  Sender: FDA-Public Use
  Company Number: CA-PFIZER INC-2020287528

PATIENT
  Age: 9 Month
  Sex: Male

DRUGS (1)
  1. HYDROCORTISONE [Suspect]
     Active Substance: HYDROCORTISONE
     Indication: Rash pruritic
     Dosage: INTERMITTENTLY
     Route: 061

REACTIONS (10)
  - Decreased appetite [Recovered/Resolved]
  - Fontanelle bulging [Recovered/Resolved]
  - Hypothyroidism [Recovered/Resolved]
  - Idiopathic intracranial hypertension [Recovered/Resolved]
  - Infant irritability [Recovered/Resolved]
  - Papilloedema [Recovered/Resolved]
  - Pyrexia [Recovered/Resolved]
  - Infantile vomiting [Recovered/Resolved]
  - Blood thyroid stimulating hormone increased [Recovered/Resolved]
  - Thyroxine free decreased [Recovered/Resolved]
